FAERS Safety Report 20105373 (Version 2)
Quarter: 2021Q4

REPORT INFORMATION
  Report Type: Spontaneous
  Country: CN (occurrence: CN)
  Receive Date: 20211124
  Receipt Date: 20211221
  Transmission Date: 20220303
  Serious: Yes (Other)
  Sender: FDA-Public Use
  Company Number: CN-009507513-2111CHN007099

PATIENT
  Age: 91 Year
  Sex: Male
  Weight: 70 kg

DRUGS (2)
  1. INVANZ [Suspect]
     Active Substance: ERTAPENEM SODIUM
     Indication: Anti-infective therapy
     Dosage: 1 GRAM, QD
     Route: 041
     Dates: start: 20211016, end: 20211016
  2. CEFUROXIME SODIUM [Concomitant]
     Active Substance: CEFUROXIME SODIUM
     Indication: Infection
     Dosage: 1.5 GRAM, BID
     Route: 041
     Dates: start: 20211014, end: 20211015

REACTIONS (4)
  - Mental disorder [Recovering/Resolving]
  - Hypoacusis [Unknown]
  - Breath sounds abnormal [Unknown]
  - Rales [Unknown]

NARRATIVE: CASE EVENT DATE: 20210101
